FAERS Safety Report 11517809 (Version 3)
Quarter: 2016Q2

REPORT INFORMATION
  Report Type: Spontaneous
  Country: US (occurrence: US)
  Receive Date: 20150917
  Receipt Date: 20160525
  Transmission Date: 20160815
  Serious: Yes (Death, Hospitalization)
  Sender: FDA-Public Use
  Company Number: US-PFIZER INC-2015309509

PATIENT
  Age: 64 Year
  Sex: Male
  Weight: 73 kg

DRUGS (15)
  1. METHOTREXATE [Concomitant]
     Active Substance: METHOTREXATE
     Indication: RHEUMATOID ARTHRITIS
     Dosage: 25 MG, WEEKLY
     Dates: start: 2013, end: 20150724
  2. AMBIEN [Concomitant]
     Active Substance: ZOLPIDEM TARTRATE
  3. ACETYLSALICYLIC ACID [Concomitant]
     Active Substance: ASPIRIN
  4. XELJANZ [Suspect]
     Active Substance: TOFACITINIB CITRATE
     Dosage: 5 MG, 2X/DAY
     Route: 048
     Dates: start: 20150501, end: 20150722
  5. FOLIC ACID. [Concomitant]
     Active Substance: FOLIC ACID
  6. RANEXA [Concomitant]
     Active Substance: RANOLAZINE
  7. XELJANZ [Suspect]
     Active Substance: TOFACITINIB CITRATE
     Indication: RHEUMATOID ARTHRITIS
     Dosage: UNK
     Dates: start: 201503
  8. LOPRESSOR [Concomitant]
     Active Substance: METOPROLOL TARTRATE
  9. IBUPROFEN. [Concomitant]
     Active Substance: IBUPROFEN
  10. WARFARIN SODIUM. [Concomitant]
     Active Substance: WARFARIN SODIUM
  11. PRAVACHOL [Concomitant]
     Active Substance: PRAVASTATIN SODIUM
  12. PREDNISONE. [Concomitant]
     Active Substance: PREDNISONE
     Indication: RHEUMATOID ARTHRITIS
     Dosage: 10 MG, DAILY
     Dates: start: 2014, end: 20150724
  13. ENDURE [Concomitant]
  14. FUROSEMIDE. [Concomitant]
     Active Substance: FUROSEMIDE
  15. VORICONAZOLE. [Concomitant]
     Active Substance: VORICONAZOLE
     Dosage: UNK

REACTIONS (8)
  - Acute kidney injury [Unknown]
  - Pyrexia [Unknown]
  - Pancytopenia [Unknown]
  - Septic shock [Unknown]
  - Hypotension [Unknown]
  - Histoplasmosis [Fatal]
  - Multiple organ dysfunction syndrome [Unknown]
  - Acute respiratory failure [Unknown]

NARRATIVE: CASE EVENT DATE: 201507
